FAERS Safety Report 14678926 (Version 1)
Quarter: 2018Q1

REPORT INFORMATION
  Report Type: Spontaneous
  Country: TH (occurrence: TH)
  Receive Date: 20180326
  Receipt Date: 20180326
  Transmission Date: 20180509
  Serious: Yes (Death, Other)
  Sender: FDA-Public Use
  Company Number: TH-ACCORD-064778

PATIENT
  Age: 61 Year
  Sex: Female

DRUGS (4)
  1. IFOSFAMIDE. [Suspect]
     Active Substance: IFOSFAMIDE
     Indication: MYCOSIS FUNGOIDES
  2. METHOTREXATE. [Suspect]
     Active Substance: METHOTREXATE
     Indication: MYCOSIS FUNGOIDES
  3. ETOPOSIDE. [Suspect]
     Active Substance: ETOPOSIDE
     Indication: MYCOSIS FUNGOIDES
  4. CARBOPLATIN. [Suspect]
     Active Substance: CARBOPLATIN
     Indication: MYCOSIS FUNGOIDES

REACTIONS (3)
  - Tumour lysis syndrome [Unknown]
  - Perforation [Fatal]
  - Septic shock [Fatal]
